FAERS Safety Report 21991206 (Version 2)
Quarter: 2023Q1

REPORT INFORMATION
  Report Type: Spontaneous
  Country: JP (occurrence: JP)
  Receive Date: 20230214
  Receipt Date: 20230227
  Transmission Date: 20230417
  Serious: Yes (Other)
  Sender: FDA-Public Use
  Company Number: JP-ELI_LILLY_AND_COMPANY-JP202302001473AA

PATIENT
  Age: 61 Year
  Sex: Male

DRUGS (3)
  1. OLANZAPINE [Suspect]
     Active Substance: OLANZAPINE
     Indication: Bipolar disorder
     Dosage: UNK
     Route: 048
     Dates: start: 201809, end: 202205
  2. VALPROATE SODIUM [Suspect]
     Active Substance: VALPROATE SODIUM
     Indication: Bipolar disorder
     Dosage: UNK
     Route: 048
     Dates: start: 201809
  3. LAMICTAL [Suspect]
     Active Substance: LAMOTRIGINE
     Indication: Bipolar disorder
     Dosage: UNK
     Route: 048
     Dates: start: 201809

REACTIONS (9)
  - Cardiac dysfunction [Unknown]
  - Weight increased [Recovering/Resolving]
  - Disturbance in attention [Unknown]
  - Road traffic accident [Unknown]
  - Intelligence test abnormal [Unknown]
  - Facial paralysis [Unknown]
  - Liver function test increased [Recovered/Resolved]
  - Blood triglycerides increased [Recovered/Resolved]
  - Glycosylated haemoglobin increased [Recovered/Resolved]

NARRATIVE: CASE EVENT DATE: 20200101
